FAERS Safety Report 5956000-3 (Version None)
Quarter: 2008Q4

REPORT INFORMATION
  Report Type: 
  Country: None (occurrence: None)
  Receive Date: 20081112
  Receipt Date: 20081105
  Transmission Date: 20090506
  Serious: Yes (Death, Life-Threatening, Hospitalization, Other)
  Sender: FDA-Public Use
  Company Number: ADE2008-0368

PATIENT
  Age: 56 Year
  Sex: Male

DRUGS (5)
  1. METFORMIN HCL [Suspect]
     Indication: TYPE 2 DIABETES MELLITUS
     Dosage: 500MG - BID - PO
     Route: 048
  2. PANTOPRAZOLE SODIUM [Concomitant]
  3. LEVOTHYROXINE SODIUM [Concomitant]
  4. GLYBURIDE [Concomitant]
  5. CIPROFLOXACIN [Concomitant]

REACTIONS (15)
  - AGITATION [None]
  - BLOOD PRESSURE SYSTOLIC INCREASED [None]
  - CARDIO-RESPIRATORY ARREST [None]
  - ELECTROMECHANICAL DISSOCIATION [None]
  - HAEMOLYTIC ANAEMIA [None]
  - HEART RATE INCREASED [None]
  - HYPERKALAEMIA [None]
  - HYPOTENSION [None]
  - JAUNDICE [None]
  - LETHARGY [None]
  - METABOLIC ACIDOSIS [None]
  - PALPITATIONS [None]
  - RESPIRATORY DISTRESS [None]
  - RESPIRATORY RATE INCREASED [None]
  - URINARY TRACT INFECTION [None]
